FAERS Safety Report 15394962 (Version 1)
Quarter: 2018Q3

REPORT INFORMATION
  Report Type: Spontaneous
  Country: BG (occurrence: BG)
  Receive Date: 20180918
  Receipt Date: 20180918
  Transmission Date: 20181010
  Serious: Yes (Other)
  Sender: FDA-Public Use
  Company Number: BG-TEVA-2018-BG-955512

PATIENT
  Age: 27 Year
  Sex: Male

DRUGS (8)
  1. CYTARABINE. [Suspect]
     Active Substance: CYTARABINE
     Indication: PROPHYLAXIS
     Dosage: UNK UNK, CYCLICAL
     Route: 037
     Dates: start: 201603, end: 201604
  2. IDARUBICIN HYDROCHLORIDE. [Suspect]
     Active Substance: IDARUBICIN HYDROCHLORIDE
     Indication: PROPHYLAXIS
     Dosage: UNK UNK, CYCLICAL
     Route: 065
     Dates: start: 201603, end: 201604
  3. FLUDARABINE [Suspect]
     Active Substance: FLUDARABINE PHOSPHATE
     Dosage: UNK, CYCLIC
     Dates: start: 201603, end: 201604
  4. METHOTREXATE. [Suspect]
     Active Substance: METHOTREXATE
     Indication: PROPHYLAXIS
     Dosage: UNK, UNK, CYCLIC
     Route: 037
     Dates: start: 201602, end: 201603
  5. METHOTREXATE. [Suspect]
     Active Substance: METHOTREXATE
     Dosage: UNK, UNK, CYCLIC
     Route: 037
     Dates: start: 201603, end: 201604
  6. GRANULOCYTE COLONY?STIMULATING FACTOR [Suspect]
     Active Substance: GRANULOCYTE COLONY-STIMULATING FACTOR NOS
     Indication: PROPHYLAXIS
     Dosage: UNK, CYCLIC
     Dates: start: 201602, end: 201603
  7. FLUDARABINE [Suspect]
     Active Substance: FLUDARABINE PHOSPHATE
     Indication: PROPHYLAXIS
     Dosage: UNK, CYCLIC
     Dates: start: 201602, end: 201603
  8. GRANULOCYTE COLONY?STIMULATING FACTOR [Suspect]
     Active Substance: GRANULOCYTE COLONY-STIMULATING FACTOR NOS
     Dosage: UNK, CYCLIC
     Dates: start: 201603, end: 201604

REACTIONS (2)
  - Haematotoxicity [Unknown]
  - Febrile neutropenia [Unknown]
